FAERS Safety Report 9671160 (Version 2)
Quarter: 2013Q4

REPORT INFORMATION
  Report Type: Spontaneous
  Country: FR (occurrence: FR)
  Receive Date: 20131106
  Receipt Date: 20131114
  Transmission Date: 20140711
  Serious: Yes (Hospitalization)
  Sender: FDA-Public Use
  Company Number: FR-BAXTER-2013BAX042497

PATIENT
  Age: 4 Year
  Sex: Male
  Weight: 19.6 kg

DRUGS (7)
  1. HOLOXAN 2000 MG, POUDRE POUR USAGE PARENT?RAL [Suspect]
     Indication: NEOPLASM
     Dosage: 3G/M2, 3H INFUSION
     Route: 042
     Dates: start: 20131007, end: 20131008
  2. UROMITEXAN 400MG/4ML SOLUTION FOR INJECTION [Suspect]
     Indication: NEOPLASM
     Dosage: 3H INFUSION
     Route: 042
     Dates: start: 20131007, end: 20131008
  3. VINCRISTINE [Suspect]
     Indication: NEOPLASM
     Route: 042
     Dates: start: 20131007, end: 20131007
  4. VINCRISTINE [Suspect]
     Route: 065
     Dates: start: 20131014
  5. VINCRISTINE [Suspect]
     Route: 065
     Dates: start: 20131021
  6. DOXORUBICIN [Suspect]
     Indication: NEOPLASM
     Route: 042
     Dates: start: 20131007, end: 20131008
  7. ACTINOMYCIN D [Suspect]
     Indication: NEOPLASM
     Route: 042
     Dates: start: 20131007, end: 20131007

REACTIONS (1)
  - Haematuria [Recovered/Resolved]
